FAERS Safety Report 15629666 (Version 2)
Quarter: 2018Q4

REPORT INFORMATION
  Report Type: Spontaneous
  Country: GB (occurrence: GB)
  Receive Date: 20181117
  Receipt Date: 20181121
  Transmission Date: 20190205
  Serious: Yes (Hospitalization)
  Sender: FDA-Public Use
  Company Number: GB-TEVA-2018-GB-975082

PATIENT
  Age: 79 Year
  Sex: Male

DRUGS (19)
  1. PIOGLITAZONE. [Concomitant]
     Active Substance: PIOGLITAZONE
  2. RAMIPRIL. [Concomitant]
     Active Substance: RAMIPRIL
  3. SERETIDE [Concomitant]
     Active Substance: FLUTICASONE PROPIONATE\SALMETEROL XINAFOATE
     Route: 065
  4. BENDROFLUMETHIAZIDE [Concomitant]
     Active Substance: BENDROFLUMETHIAZIDE
     Route: 065
  5. METFORMIN [Concomitant]
     Active Substance: METFORMIN HYDROCHLORIDE
     Route: 065
  6. MOMETASONE [Concomitant]
     Active Substance: MOMETASONE
     Route: 045
  7. COCODAMOL [Concomitant]
     Active Substance: ACETAMINOPHEN\CODEINE PHOSPHATE
     Route: 065
  8. ZOLADEX [Concomitant]
     Active Substance: GOSERELIN ACETATE
  9. SITAGLIPTIN [Concomitant]
     Active Substance: SITAGLIPTIN
     Route: 065
  10. DEXAMETHASONE. [Suspect]
     Active Substance: DEXAMETHASONE
     Indication: PROSTATE CANCER
     Dosage: .5 MILLIGRAM DAILY;
     Dates: start: 201404
  11. SIMVASTATIN. [Concomitant]
     Active Substance: SIMVASTATIN
  12. TAMSULOSIN [Concomitant]
     Active Substance: TAMSULOSIN
  13. VENTOLIN [Concomitant]
     Active Substance: ALBUTEROL SULFATE
     Dosage: 100 MICROGRAMS/DOSE
     Route: 065
  14. OMEPRAZOLE. [Concomitant]
     Active Substance: OMEPRAZOLE
  15. ORAMORPH [Concomitant]
     Active Substance: MORPHINE SULFATE
     Route: 065
  16. FERROUS FUMARATE [Concomitant]
     Active Substance: FERROUS FUMARATE
  17. TIOTROPIUM [Concomitant]
     Active Substance: TIOTROPIUM
     Route: 055
  18. DOXAZOSIN [Concomitant]
     Active Substance: DOXAZOSIN\DOXAZOSIN MESYLATE
     Route: 065
  19. IBUPROFEN. [Concomitant]
     Active Substance: IBUPROFEN
     Route: 065

REACTIONS (2)
  - Osteoporosis [Unknown]
  - Spinal fracture [Unknown]

NARRATIVE: CASE EVENT DATE: 201611
